FAERS Safety Report 10661190 (Version 1)
Quarter: 2014Q4

REPORT INFORMATION
  Report Type: Spontaneous
  Country: FR (occurrence: FR)
  Receive Date: 20141218
  Receipt Date: 20141218
  Transmission Date: 20150529
  Serious: Yes (Life-Threatening, Hospitalization)
  Sender: FDA-Public Use
  Company Number: FR-ELI_LILLY_AND_COMPANY-FR201412005445

PATIENT
  Age: 54 Year
  Sex: Female

DRUGS (7)
  1. ZOLPIDEM [Suspect]
     Active Substance: ZOLPIDEM\ZOLPIDEM TARTRATE
     Dosage: 150 MG, UNKNOWN
     Route: 048
     Dates: start: 20140929, end: 20140930
  2. SERESTA [Suspect]
     Active Substance: OXAZEPAM
     Dosage: 5 G, UNKNOWN
     Route: 048
     Dates: start: 20140929, end: 20140930
  3. TEMESTA [Suspect]
     Active Substance: LORAZEPAM
     Dosage: 17.5 MG, UNKNOWN
     Route: 048
     Dates: start: 20140929, end: 20140930
  4. HAVLANE [Suspect]
     Active Substance: LOPRAZOLAM
     Dosage: 20 MG, UNKNOWN
     Route: 048
     Dates: start: 20140929, end: 20140930
  5. IMOVANE [Suspect]
     Active Substance: ZOPICLONE
     Dosage: 630 MG, UNKNOWN
     Route: 048
     Dates: start: 20140929, end: 20140930
  6. PROZAC [Suspect]
     Active Substance: FLUOXETINE HYDROCHLORIDE
     Dosage: 280 MG, UNKNOWN
     Route: 048
  7. THIOPENTAL [Suspect]
     Active Substance: THIOPENTAL
     Dosage: UNK
     Route: 065
     Dates: start: 20140929, end: 20140930

REACTIONS (5)
  - Rhabdomyolysis [Recovering/Resolving]
  - Intentional overdose [Recovered/Resolved]
  - Coma [Recovered/Resolved]
  - Hyperlactacidaemia [Recovered/Resolved]
  - Encephalopathy [Unknown]

NARRATIVE: CASE EVENT DATE: 20140930
